FAERS Safety Report 22208074 (Version 7)
Quarter: 2025Q4

REPORT INFORMATION
  Report Type: Report from Study
  Country: EU (occurrence: EU)
  Receive Date: 20230413
  Receipt Date: 20251020
  Transmission Date: 20260117
  Serious: Yes (Hospitalization, Other)
  Sender: JOHNSON AND JOHNSON
  Company Number: EU-JNJFOC-20230119564

PATIENT
  Age: 55 Year
  Sex: Female
  Weight: 124 kg

DRUGS (6)
  1. SPRAVATO [Suspect]
     Active Substance: ESKETAMINE
     Indication: Depression
     Route: 045
     Dates: start: 20220308, end: 20220308
  2. SPRAVATO [Suspect]
     Active Substance: ESKETAMINE
     Route: 045
     Dates: start: 20220310, end: 20220310
  3. SPRAVATO [Suspect]
     Active Substance: ESKETAMINE
     Dosage: THERAPY DATES:15-MAR-2022, 17-MAR-2022,22-MAR-2022, 24-MAR-2022,29-MAR-2022,31-MAR-2022,07-APR-2022,
     Route: 045
     Dates: start: 20220315, end: 20220623
  4. SPRAVATO [Suspect]
     Active Substance: ESKETAMINE
     Dosage: 06-SEP-2022, 20-SEP-2022, 04-OCT-2022,11-OCT-2022,18-OCT-2022, 25-OCT-2022, 03-NOV-2022, 10-NOV-2022
     Route: 045
     Dates: start: 20220906, end: 20221222
  5. SPRAVATO [Suspect]
     Active Substance: ESKETAMINE
     Dosage: THERAPY DATES: 05-JAN-2023, 12-JAN-2023,19-JAN-2023
     Route: 045
     Dates: start: 20230105, end: 20230119
  6. SPRAVATO [Suspect]
     Active Substance: ESKETAMINE
     Route: 045
     Dates: start: 20230126, end: 20230202

REACTIONS (3)
  - Major depression [Not Recovered/Not Resolved]
  - Depression [Not Recovered/Not Resolved]
  - Dissociation [Recovered/Resolved]

NARRATIVE: CASE EVENT DATE: 20220308
